FAERS Safety Report 9563670 (Version 1)
Quarter: 2013Q3

REPORT INFORMATION
  Report Type: Spontaneous
  Country: GB (occurrence: None)
  Receive Date: 20130926
  Receipt Date: 20130926
  Transmission Date: 20140515
  Serious: Yes (Life-Threatening, Hospitalization, Other)
  Sender: FDA-Public Use
  Company Number: FK201304296

PATIENT
  Age: 95 Year
  Sex: Male

DRUGS (11)
  1. FUROSEMIDE [Suspect]
     Indication: PRODUCT USED FOR UNKNOWN INDICATION
     Route: 048
  2. AUGMENTIN [Suspect]
     Indication: CHRONIC OBSTRUCTIVE PULMONARY DISEASE
     Route: 048
     Dates: start: 20121016, end: 20121019
  3. ADCAL-D3 (LEKOVITCA) [Concomitant]
  4. ASPIRIN (ACETYLSALICYLIC ACID) [Concomitant]
  5. CARBOCISTEINE (CARBOCISTEINE) [Concomitant]
  6. DIAZEPAM (DIAZEPAM) [Concomitant]
  7. LANSOPRAZOLE (LANSOPRAZOLE) [Concomitant]
  8. LEVOTHYROXINE (LEVOTHYROXINE) [Concomitant]
  9. PREDNISOLONE (PREDNISOLONE) [Concomitant]
  10. SIMVASTATIN (SIMVASTATIN) [Concomitant]
  11. STRONTIUM RANELATE (STRONTIUM RANELATE) [Concomitant]

REACTIONS (4)
  - Confusional state [None]
  - Dyspnoea [None]
  - Renal failure acute [None]
  - Treatment failure [None]
